FAERS Safety Report 6735518-X (Version None)
Quarter: 2010Q2

REPORT INFORMATION
  Report Type: 
  Country: None (occurrence: None)
  Receive Date: 20100521
  Receipt Date: 20100514
  Transmission Date: 20101027
  Serious: Yes (Other)
  Sender: FDA-Public Use
  Company Number: BR-ASTRAZENECA-2010SE22470

PATIENT
  Age: 43 Year
  Sex: Male
  Weight: 79 kg

DRUGS (6)
  1. CRESTOR [Suspect]
     Indication: ARTERIAL INJURY
     Route: 048
     Dates: start: 20090301
  2. CRESTOR [Suspect]
     Indication: BLOOD CHOLESTEROL ABNORMAL
     Route: 048
     Dates: start: 20090301
  3. CRESTOR [Suspect]
     Route: 048
     Dates: start: 20100201
  4. CRESTOR [Suspect]
     Route: 048
     Dates: start: 20100201
  5. CLOPIDOGREL [Concomitant]
     Indication: ARTERIAL INJURY
     Route: 048
     Dates: start: 20090301
  6. ASPIRIN [Concomitant]
     Indication: ARTERIAL INJURY
     Route: 048
     Dates: start: 20090301

REACTIONS (1)
  - ARTERIAL INJURY [None]
